FAERS Safety Report 15028580 (Version 1)
Quarter: 2018Q2

REPORT INFORMATION
  Report Type: Spontaneous
  Country: US (occurrence: US)
  Receive Date: 20180526
  Receipt Date: 20180526
  Transmission Date: 20180711
  Serious: No
  Sender: FDA-Public Use
  Company Number: None

PATIENT
  Age: 6 Year
  Sex: Male

DRUGS (1)
  1. OMNITROPE [Suspect]
     Active Substance: SOMATROPIN
     Dates: start: 20180526, end: 20180526

REACTIONS (3)
  - Affective disorder [None]
  - Pain in extremity [None]
  - Rhinorrhoea [None]

NARRATIVE: CASE EVENT DATE: 20180526
